FAERS Safety Report 6064455-1 (Version None)
Quarter: 2009Q1

REPORT INFORMATION
  Report Type: 
  Country: None (occurrence: None)
  Receive Date: 20090203
  Receipt Date: 20090203
  Transmission Date: 20090719
  Serious: Yes (Life-Threatening, Other)
  Sender: FDA-Public Use
  Company Number: None

PATIENT
  Sex: Male
  Weight: 65.7716 kg

DRUGS (2)
  1. LAMICTAL [Suspect]
     Indication: BIPOLAR DISORDER
     Dosage: 400MG AT BEDTIME PO
     Route: 048
     Dates: start: 20080501, end: 20090201
  2. GEODON [Suspect]
     Indication: BIPOLAR DISORDER
     Dosage: 80MG AT BEDTIME PO
     Route: 048

REACTIONS (4)
  - ANOREXIA [None]
  - DYSPHAGIA [None]
  - INCORRECT DOSE ADMINISTERED [None]
  - WEIGHT DECREASED [None]
